FAERS Safety Report 4812189-0 (Version None)
Quarter: 2005Q4

REPORT INFORMATION
  Report Type: 
  Country: None (occurrence: None)
  Receive Date: 20051028
  Receipt Date: 20040913
  Transmission Date: 20060501
  Serious: No
  Sender: FDA-Public Use
  Company Number: US-GLAXOSMITHKLINE-A0525422A

PATIENT
  Age: 77 Year
  Sex: Female

DRUGS (15)
  1. ADVAIR DISKUS 100/50 [Suspect]
     Indication: ASTHMA
     Dosage: 250MG TWICE PER DAY
     Route: 055
  2. CLONAZEPAM [Concomitant]
     Dosage: 1MG UNKNOWN
     Route: 065
  3. PLAQUENIL [Concomitant]
     Dosage: 200MG TWICE PER DAY
     Route: 065
  4. CLARINEX [Concomitant]
     Route: 065
  5. CYTOTEC [Concomitant]
     Dosage: 100MG TWICE PER DAY
     Route: 065
  6. FOLIC ACID [Concomitant]
     Dosage: 1MG THREE TIMES PER DAY
     Route: 065
  7. SINEMET [Concomitant]
     Route: 065
  8. ADALAT [Concomitant]
     Route: 065
  9. ALTACE [Concomitant]
     Route: 065
  10. URECHOLINE [Concomitant]
     Dosage: 50MG TWICE PER DAY
     Route: 065
  11. FOSAMAX [Concomitant]
     Route: 065
  12. PREVACID [Concomitant]
     Route: 065
  13. MOBIC [Concomitant]
     Route: 065
  14. SALAGEN [Concomitant]
     Route: 065
  15. MAXAIR [Concomitant]
     Route: 065

REACTIONS (1)
  - PHARMACEUTICAL PRODUCT COMPLAINT [None]
